FAERS Safety Report 7941544-5 (Version None)
Quarter: 2011Q4

REPORT INFORMATION
  Report Type: 
  Country: None (occurrence: None)
  Receive Date: 20111122
  Receipt Date: 20111122
  Transmission Date: 20120403
  Serious: Yes (Hospitalization)
  Sender: FDA-Public Use
  Company Number: None

PATIENT
  Sex: Male
  Weight: 77.4 kg

DRUGS (3)
  1. CARBOPLATIN [Suspect]
     Dosage: 1217 MG
     Dates: end: 20111031
  2. ERBITUX [Suspect]
     Dosage: 3709 MG
     Dates: end: 20111031
  3. TAXOL [Suspect]
     Dosage: 540 MG
     Dates: end: 20111031

REACTIONS (1)
  - PNEUMONIA [None]
